FAERS Safety Report 10520574 (Version 1)
Quarter: 2014Q4

REPORT INFORMATION
  Report Type: Spontaneous
  Country: US (occurrence: US)
  Receive Date: 20141015
  Receipt Date: 20141015
  Transmission Date: 20150528
  Serious: Yes (Hospitalization)
  Sender: FDA-Public Use
  Company Number: US-TARO-2014TAR00470

PATIENT
  Sex: Female
  Weight: 68.27 kg

DRUGS (6)
  1. WARFARIN SODIUM TABLETS USP 5MG [Suspect]
     Active Substance: WARFARIN SODIUM
     Indication: CEREBROVASCULAR ACCIDENT
     Dosage: 5 MG, 1X/DAY
     Route: 048
     Dates: start: 200809
  2. UNSPECIFIED ^SHOT IN EYE^ [Concomitant]
     Dosage: 1 DOSAGE UNITS, 1X/5 WEEKS
  3. VITAMIN C [Concomitant]
     Active Substance: ASCORBIC ACID
  4. LISINOPRIL. [Concomitant]
     Active Substance: LISINOPRIL
     Dosage: 20 MG, UNK
  5. LUTEIN [Concomitant]
     Active Substance: LUTEIN
  6. ATENOLOL. [Concomitant]
     Active Substance: ATENOLOL
     Dosage: UNK

REACTIONS (5)
  - Blood creatine phosphokinase increased [Recovered/Resolved]
  - Cerebrovascular accident [Recovered/Resolved]
  - Feeling abnormal [Not Recovered/Not Resolved]
  - Myalgia [Not Recovered/Not Resolved]
  - Muscle disorder [Not Recovered/Not Resolved]
